FAERS Safety Report 8360825-7 (Version None)
Quarter: 2012Q2

REPORT INFORMATION
  Report Type: 
  Country: None (occurrence: None)
  Receive Date: 20120515
  Receipt Date: 20120504
  Transmission Date: 20120825
  Serious: Yes (Death)
  Sender: FDA-Public Use
  Company Number: BE-ALEXION-A201200901

PATIENT
  Sex: Male

DRUGS (3)
  1. SOLIRIS [Suspect]
     Dosage: 900 MG, Q2W
     Route: 042
     Dates: start: 20051008, end: 20120503
  2. NEUPOGEN [Concomitant]
     Indication: NEUTROPENIA
     Dosage: 300, UNK
     Route: 058
     Dates: start: 20030101, end: 20120502
  3. SOLIRIS [Suspect]
     Indication: PAROXYSMAL NOCTURNAL HAEMOGLOBINURIA
     Dosage: 600 MG, QW
     Route: 042
     Dates: start: 20050908, end: 20051008

REACTIONS (3)
  - SUDDEN DEATH [None]
  - HEADACHE [None]
  - MENINGORRHAGIA [None]
